FAERS Safety Report 5804512-5 (Version None)
Quarter: 2008Q3

REPORT INFORMATION
  Report Type: 
  Country: None (occurrence: None)
  Receive Date: 20080707
  Receipt Date: 20080707
  Transmission Date: 20090109
  Serious: Yes (Life-Threatening)
  Sender: FDA-Public Use
  Company Number: None

PATIENT
  Age: 29 Year
  Sex: Female
  Weight: 145.151 kg

DRUGS (1)
  1. MIRENA [Suspect]
     Indication: CONTRACEPTION
     Dosage: INTRA-UTERI
     Route: 019
     Dates: start: 20080201, end: 20080701

REACTIONS (6)
  - ALOPECIA [None]
  - HAEMORRHAGE [None]
  - MOOD SWINGS [None]
  - MUSCLE SPASMS [None]
  - VAGINAL HAEMORRHAGE [None]
  - WEIGHT INCREASED [None]
